FAERS Safety Report 8577119-7 (Version None)
Quarter: 2012Q2

REPORT INFORMATION
  Report Type: 
  Country: None (occurrence: None)
  Receive Date: 20120423
  Receipt Date: 20091105
  Transmission Date: 20120825
  Serious: Yes (Other)
  Sender: FDA-Public Use
  Company Number: PHEH2009US11003

PATIENT
  Age: 49 Year
  Sex: Male

DRUGS (11)
  1. EXJADE [Suspect]
     Indication: LYMPHOCYTIC LEUKAEMIA
     Dosage: 1250 MG DAILY, ORAL
     Route: 048
     Dates: start: 20090611, end: 20090903
  2. BACTRIM [Concomitant]
  3. PANTOPRAZOLE [Concomitant]
  4. SERTRALINE HYDROCHLORIDE [Concomitant]
  5. TACROLIMUS [Concomitant]
  6. MAGNESIUM (MAGNESIUM) [Concomitant]
  7. FLUCINOM (FLUTAMIDE) [Concomitant]
  8. SIROLIMUS (RAPAMUNE) [Concomitant]
  9. PREDNISONE TAB [Concomitant]
  10. PERCOCET [Concomitant]
  11. ACYCLOVIR [Concomitant]

REACTIONS (1)
  - BLOOD CREATININE INCREASED [None]
